FAERS Safety Report 4442332-7 (Version None)
Quarter: 2004Q3

REPORT INFORMATION
  Report Type: 
  Country: None (occurrence: None)
  Receive Date: 20040903
  Receipt Date: 20040719
  Transmission Date: 20050211
  Serious: Yes (Other)
  Sender: FDA-Public Use
  Company Number: 2004UW15036

PATIENT
  Age: 65 Year
  Sex: Female
  Weight: 127.9144 kg

DRUGS (6)
  1. CRESTOR [Suspect]
  2. LISINOPRIL [Concomitant]
  3. SYNTHROID [Concomitant]
  4. COUMADIN [Concomitant]
  5. TOPROL-XL [Concomitant]
  6. DIGOXIN [Concomitant]

REACTIONS (2)
  - LABORATORY TEST ABNORMAL [None]
  - PAIN [None]
